FAERS Safety Report 19886788 (Version 1)
Quarter: 2021Q3

REPORT INFORMATION
  Report Type: Spontaneous
  Country: US (occurrence: US)
  Receive Date: 20210927
  Receipt Date: 20210927
  Transmission Date: 20211014
  Serious: No
  Sender: FDA-Public Use
  Company Number: US-CELLTRION INC.-2021US003717

PATIENT

DRUGS (2)
  1. INFLIXIMAB (UNKNOWN) [Suspect]
     Active Substance: INFLIXIMAB
     Indication: CARDIAC SARCOIDOSIS
     Dosage: STANDARD DOSING FREQUENCY WITH WEIGHT?BASED DOSING (3 MG/KG, 5 MG/KG, 6 MG/KG OR 10 MG/KG)
     Route: 042
  2. PREDNISONE. [Suspect]
     Active Substance: PREDNISONE
     Indication: CARDIAC SARCOIDOSIS
     Dosage: DOSE WAS TYPICALLY (MEAN MAX DAILY DOSE 45 ??? 15.2 MG; RANGE 10?80 MG)

REACTIONS (3)
  - Herpes zoster [Unknown]
  - Off label use [Unknown]
  - Drug effective for unapproved indication [Unknown]
